FAERS Safety Report 6427030-2 (Version None)
Quarter: 2009Q4

REPORT INFORMATION
  Report Type: 
  Country: None (occurrence: None)
  Receive Date: 20091103
  Receipt Date: 20091103
  Transmission Date: 20100525
  Serious: Yes (Hospitalization, Other)
  Sender: FDA-Public Use
  Company Number: None

PATIENT
  Age: 84 Year
  Sex: Male
  Weight: 66.41 kg

DRUGS (1)
  1. TERAZOSIN HCL [Suspect]
     Dosage: 4 MG HS PO
     Route: 048
     Dates: start: 20081130, end: 20090604

REACTIONS (2)
  - DECREASED APPETITE [None]
  - HYPOTENSION [None]
